FAERS Safety Report 9543838 (Version 4)
Quarter: 2013Q4

REPORT INFORMATION
  Report Type: Spontaneous
  Country: US (occurrence: US)
  Receive Date: 20130923
  Receipt Date: 20131218
  Transmission Date: 20140711
  Serious: Yes (Death, Life-Threatening, Hospitalization, Disabling, Other)
  Sender: FDA-Public Use
  Company Number: US-GLAXOSMITHKLINE-A1042103A

PATIENT
  Age: 60 Year
  Sex: Male
  Weight: 84.1 kg

DRUGS (13)
  1. ADVAIR [Suspect]
     Indication: CHRONIC OBSTRUCTIVE PULMONARY DISEASE
     Dosage: 1PUFF TWICE PER DAY
     Route: 055
     Dates: start: 20120730, end: 20130623
  2. VENTOLIN [Suspect]
     Indication: PRODUCT USED FOR UNKNOWN INDICATION
     Route: 065
     Dates: start: 20120730
  3. AZITHROMYCIN [Suspect]
     Indication: PRODUCT USED FOR UNKNOWN INDICATION
     Route: 065
     Dates: start: 20130629, end: 20130702
  4. ALBUTEROL [Concomitant]
  5. PREDNISONE [Concomitant]
  6. THEOPHYLLINE ANHYDROUS [Concomitant]
  7. HYDROCHLOROTHIAZIDE [Concomitant]
  8. LISINOPRIL [Concomitant]
  9. HYDROXYZINE [Concomitant]
  10. PANTOPRAZOLE SODIUM [Concomitant]
  11. PNEUMONIA SHOT [Concomitant]
  12. PROBIOTIC [Concomitant]
  13. VARICELLA VACCINE [Concomitant]

REACTIONS (12)
  - Pneumonia [Fatal]
  - Myalgia [Unknown]
  - Bone pain [Unknown]
  - Insomnia [Unknown]
  - Fatigue [Not Recovered/Not Resolved]
  - Asthenia [Unknown]
  - Dyspnoea [Unknown]
  - Adverse event [Unknown]
  - Drug ineffective [Unknown]
  - Pain [Not Recovered/Not Resolved]
  - Cough [Not Recovered/Not Resolved]
  - Throat irritation [Not Recovered/Not Resolved]
